FAERS Safety Report 4662954-8 (Version None)
Quarter: 2005Q2

REPORT INFORMATION
  Report Type: 
  Country: None (occurrence: None)
  Receive Date: 20050513
  Receipt Date: 20050503
  Transmission Date: 20051028
  Serious: Yes (Hospitalization)
  Sender: FDA-Public Use
  Company Number: S05-UKI-01725-01

PATIENT
  Age: 58 Year
  Sex: Female

DRUGS (2)
  1. CIPRALEX (ESCITALOPRAM) [Suspect]
     Dosage: 10 MG QD PO
     Route: 048
     Dates: start: 20050422, end: 20050502
  2. BENDROFLUAZIDE [Suspect]
     Dosage: 2.5 MG QD PO
     Route: 048
     Dates: start: 20031201, end: 20050427

REACTIONS (5)
  - CONFUSIONAL STATE [None]
  - HALLUCINATION, AUDITORY [None]
  - HALLUCINATION, VISUAL [None]
  - HYPONATRAEMIA [None]
  - PARANOIA [None]
